FAERS Safety Report 4399573-7 (Version None)
Quarter: 2004Q3

REPORT INFORMATION
  Report Type: 
  Country: None (occurrence: None)
  Receive Date: 20040716
  Receipt Date: 20020319
  Transmission Date: 20050211
  Serious: Yes (Hospitalization, Disabling, Other)
  Sender: FDA-Public Use
  Company Number: US-MERCK-0203USA02026

PATIENT
  Age: 78 Year
  Sex: Male
  Weight: 84 kg

DRUGS (14)
  1. ASPIRIN [Concomitant]
     Route: 065
  2. ATENOLOL [Concomitant]
     Route: 065
  3. TRENTAL [Concomitant]
     Route: 065
  4. POTASSIUM (UNSPECIFIED) [Concomitant]
     Route: 065
  5. CYCLOBENZAPRINE HYDROCHLORIDE [Concomitant]
     Route: 048
  6. LASIX [Concomitant]
     Route: 065
  7. NOVOLIN [Concomitant]
     Indication: DIABETES MELLITUS
     Route: 058
     Dates: start: 19920101
  8. NOVOLIN [Concomitant]
     Route: 058
     Dates: start: 19920101
  9. ZESTRIL [Concomitant]
     Route: 065
  10. PROCARDIA [Concomitant]
     Route: 065
  11. RANITIDINE [Concomitant]
     Route: 065
  12. VIOXX [Suspect]
     Indication: BACK PAIN
     Route: 048
     Dates: start: 20000301, end: 20010101
  13. VIOXX [Suspect]
     Route: 048
     Dates: start: 20010101, end: 20010901
  14. ULTRAM [Concomitant]
     Route: 065
     Dates: start: 20000301

REACTIONS (19)
  - ANAEMIA [None]
  - BLOOD CHOLESTEROL INCREASED [None]
  - CARDIAC FAILURE CONGESTIVE [None]
  - CONSTIPATION [None]
  - CORONARY ARTERY ATHEROSCLEROSIS [None]
  - CORONARY ARTERY DISEASE [None]
  - EXOSTOSIS [None]
  - GASTROOESOPHAGEAL REFLUX DISEASE [None]
  - HERPES ZOSTER [None]
  - HYPERLIPIDAEMIA [None]
  - HYPERTENSION [None]
  - LUMBAR RADICULOPATHY [None]
  - LUNG NEOPLASM [None]
  - MYOCARDIAL INFARCTION [None]
  - PNEUMONITIS [None]
  - RENAL ARTERY STENOSIS [None]
  - SILENT MYOCARDIAL INFARCTION [None]
  - SPINAL COLUMN STENOSIS [None]
  - URINARY TRACT INFECTION [None]
